FAERS Safety Report 8173930-5 (Version None)
Quarter: 2012Q1

REPORT INFORMATION
  Report Type: 
  Country: None (occurrence: None)
  Receive Date: 20120229
  Receipt Date: 20120224
  Transmission Date: 20120608
  Serious: Yes (Death)
  Sender: FDA-Public Use
  Company Number: ES-PFIZER INC-2012050655

PATIENT
  Age: 55 Year
  Sex: Female

DRUGS (1)
  1. SUTENT [Suspect]
     Indication: METASTATIC RENAL CELL CARCINOMA
     Dosage: 35 UNK, UNK
     Dates: end: 20111101

REACTIONS (1)
  - DEATH [None]
